FAERS Safety Report 24924464 (Version 1)
Quarter: 2025Q1

REPORT INFORMATION
  Report Type: Spontaneous
  Country: GB (occurrence: GB)
  Receive Date: 20250204
  Receipt Date: 20250204
  Transmission Date: 20250408
  Serious: Yes (Other)
  Sender: BOEHRINGER INGELHEIM
  Company Number: None

PATIENT
  Age: 56 Year
  Sex: Male
  Weight: 66 kg

DRUGS (15)
  1. TIOTROPIUM BROMIDE [Suspect]
     Active Substance: TIOTROPIUM BROMIDE
     Indication: Product used for unknown indication
     Dosage: ONE DOSE ONCE DAILY
     Dates: start: 20250121
  2. NUTILIS CLEAR [Concomitant]
     Indication: Ill-defined disorder
  3. ATORVASTATIN [Concomitant]
     Active Substance: ATORVASTATIN
     Indication: Ill-defined disorder
     Dosage: AT NIGHT- CRUSH + MIX WITH WATER
     Dates: start: 20231220
  4. MACROGOL COMPOUND [Concomitant]
     Indication: Ill-defined disorder
     Dosage: TAKE ONE SACHET TWICE A DAY
     Dates: start: 20231220
  5. RANITIDINE HYDROCHLORIDE [Concomitant]
     Active Substance: RANITIDINE HYDROCHLORIDE
     Indication: Ill-defined disorder
     Dosage: TAKE AT LEAST 30 MIN A...
     Dates: start: 20231220
  6. DILTIAZEM [Concomitant]
     Active Substance: DILTIAZEM
     Indication: Ill-defined disorder
     Dosage: CAPSULE CAN BE OPENED AND CONTENTS M...
     Dates: start: 20231220
  7. VENTOLIN [Concomitant]
     Active Substance: ALBUTEROL SULFATE
     Indication: Ill-defined disorder
     Dates: start: 20231220
  8. EASYHALER [Concomitant]
     Indication: Ill-defined disorder
     Dosage: TWO PUFFS
     Dates: start: 20240624, end: 20241104
  9. MOMETASONE [Concomitant]
     Active Substance: MOMETASONE
     Indication: Ill-defined disorder
     Dosage: SPRAY TWO DOSES INTO EACH NOSTRIL
     Dates: start: 20240708
  10. LANSOPRAZOLE [Concomitant]
     Active Substance: LANSOPRAZOLE
     Indication: Ill-defined disorder
     Dates: start: 20240829
  11. CARBOCYSTEINE [Concomitant]
     Active Substance: CARBOCYSTEINE
     Indication: Ill-defined disorder
     Dates: start: 20241009
  12. CITALOPRAM [Concomitant]
     Active Substance: CITALOPRAM
     Indication: Ill-defined disorder
     Dosage: 8 DROPS (20MG) ONCE DAILY
     Dates: start: 20241009
  13. BUDESONIDE\FORMOTEROL FUMARATE [Concomitant]
     Active Substance: BUDESONIDE\FORMOTEROL FUMARATE
     Indication: Ill-defined disorder
     Dosage: INHALE TWO DOSES TWICE A DAY, 1 EXTRA PUFF AS R...
     Dates: start: 20241104
  14. FORTISIP BOTTLE [Concomitant]
     Indication: Ill-defined disorder
  15. INCRUSE ELLIPTA [Concomitant]
     Active Substance: UMECLIDINIUM BROMIDE
     Indication: Ill-defined disorder
     Dosage: INHALE ONE DOSE ONCE A DAY
     Dates: start: 20250203

REACTIONS (2)
  - Dyspnoea [Recovering/Resolving]
  - Palpitations [Unknown]
